FAERS Safety Report 16082829 (Version 3)
Quarter: 2019Q2

REPORT INFORMATION
  Report Type: Report from Study
  Country: None (occurrence: TR)
  Receive Date: 20190318
  Receipt Date: 20190402
  Transmission Date: 20190711
  Serious: Yes (Hospitalization, Other)
  Sender: FDA-Public Use
  Company Number: TR-ABBVIE-19S-161-2703276-00

PATIENT
  Age: 50 Year
  Sex: Male
  Weight: 55 kg

DRUGS (4)
  1. DUODOPA [Suspect]
     Active Substance: CARBIDOPA\LEVODOPA
     Indication: PARKINSON^S DISEASE
     Dosage: MD (ML): 5.00 CD (ML): 2.40 ED(ML): 1.00
     Route: 050
     Dates: start: 20190312, end: 20190312
  2. DAFLON [Concomitant]
     Indication: HAEMORRHOIDS
     Route: 048
     Dates: start: 2019
  3. DUODOPA [Suspect]
     Active Substance: CARBIDOPA\LEVODOPA
     Route: 050
     Dates: start: 20190313
  4. GYREX [Concomitant]
     Indication: DEPRESSION
     Route: 048
     Dates: start: 2017

REACTIONS (3)
  - Liver injury [Recovered/Resolved]
  - Abdominal pain [Recovered/Resolved]
  - Pneumoperitoneum [Recovered/Resolved]

NARRATIVE: CASE EVENT DATE: 20190312
